FAERS Safety Report 9034194 (Version 1)
Quarter: 2013Q1

REPORT INFORMATION
  Report Type: Spontaneous
  Country: US (occurrence: US)
  Receive Date: 20130128
  Receipt Date: 20130128
  Transmission Date: 20140127
  Serious: Yes (Other)
  Sender: FDA-Public Use
  Company Number: US-AMGEN-USASP2012003197

PATIENT
  Age: 70 Year
  Sex: Female
  Weight: 58.05 kg

DRUGS (13)
  1. PROLIA [Suspect]
     Indication: OSTEOPOROSIS POSTMENOPAUSAL
     Dosage: 60 MG, Q6MO
     Dates: start: 20110811
  2. PROLIA [Suspect]
     Indication: OSTEOPENIA
  3. CALCIUM [Concomitant]
     Dosage: UNK
  4. COUMADIN [Concomitant]
  5. MULTIVITAMIN [Concomitant]
  6. VALIUM [Concomitant]
     Dosage: 5 MG, UNK
  7. HYDROXYZINE [Concomitant]
  8. METOPROLOL [Concomitant]
     Dosage: 12.5 G, UNK
  9. CELEBREX [Concomitant]
     Dosage: QD
  10. FLONASE 5% [Concomitant]
     Dosage: UNK
  11. TEMAZEPAM [Concomitant]
     Dosage: 30 G, UNK
  12. LORATADINE [Concomitant]
     Dosage: 10 MG, UNK
  13. ALBUTEROL                          /00139501/ [Concomitant]
     Dosage: UNK UNK, PRN

REACTIONS (12)
  - Nervousness [Recovering/Resolving]
  - Agitation [Recovering/Resolving]
  - Stress [Unknown]
  - Hypersensitivity [Unknown]
  - Burning sensation [Recovering/Resolving]
  - Glossodynia [Recovering/Resolving]
  - Tongue discolouration [Recovering/Resolving]
  - Lip disorder [Not Recovered/Not Resolved]
  - Feeling abnormal [Not Recovered/Not Resolved]
  - Toothache [Not Recovered/Not Resolved]
  - Skin disorder [Not Recovered/Not Resolved]
  - Constipation [Not Recovered/Not Resolved]
